FAERS Safety Report 6673308-7 (Version None)
Quarter: 2010Q2

REPORT INFORMATION
  Report Type: 
  Country: None (occurrence: None)
  Receive Date: 20100408
  Receipt Date: 20100402
  Transmission Date: 20101027
  Serious: Yes (Death, Hospitalization, Other)
  Sender: FDA-Public Use
  Company Number: US-ELI_LILLY_AND_COMPANY-US201001003003

PATIENT
  Sex: Female
  Weight: 80.272 kg

DRUGS (14)
  1. GEMZAR [Suspect]
     Indication: PANCREATIC CARCINOMA METASTATIC
     Dates: start: 20091022, end: 20091203
  2. IRBESARTAN + HYDROCHLOROTHIAZIDE [Concomitant]
     Dosage: UNK, DAILY (1/D)
     Route: 048
  3. HYDROCODONE BITARTRATE [Concomitant]
     Dosage: UNK, AS NEEDED
     Route: 048
  4. FUROSEMIDE [Concomitant]
     Dosage: 20 MG, DAILY (1/D)
     Route: 048
  5. METFORMIN [Concomitant]
     Dosage: 500 MG, 2/D
     Route: 048
  6. DOCUSATE [Concomitant]
     Dosage: 100 MG, DAILY (1/D)
     Route: 048
  7. POTASSIUM [Concomitant]
     Dosage: 20 MEQ, 2/D
     Route: 048
  8. CILOSTAZOL [Concomitant]
     Dosage: 100 MG, 2/D
     Route: 048
  9. SUCRALFATE [Concomitant]
     Dosage: 1 G, 2/D
     Route: 048
  10. OMEPRAZOLE [Concomitant]
     Dosage: UNK, DAILY (1/D)
     Route: 048
  11. LORATADINE [Concomitant]
     Dosage: 10 MG, DAILY (1/D)
     Route: 048
  12. HYDROMORPHONE HCL [Concomitant]
     Dosage: 2 MG, AS NEEDED
     Route: 048
  13. FENTANYL-100 [Concomitant]
     Dosage: 25 UG, EVERY 72 HOURS
     Route: 062
  14. PROMETHAZINE HCL [Concomitant]
     Dosage: 25 MG, AS NEEDED
     Route: 048

REACTIONS (5)
  - CEREBELLAR ARTERY THROMBOSIS [None]
  - DEEP VEIN THROMBOSIS [None]
  - MALIGNANT NEOPLASM PROGRESSION [None]
  - PULMONARY EMBOLISM [None]
  - RECTAL HAEMORRHAGE [None]
